FAERS Safety Report 18835827 (Version 1)
Quarter: 2021Q1

REPORT INFORMATION
  Report Type: Spontaneous
  Country: US (occurrence: US)
  Receive Date: 20210203
  Receipt Date: 20210203
  Transmission Date: 20210419
  Serious: No
  Sender: FDA-Public Use
  Company Number: US-ALLERGAN-2047171US

PATIENT
  Sex: Female

DRUGS (8)
  1. BOTOX [Suspect]
     Active Substance: ONABOTULINUMTOXINA
     Indication: EXPOSURE VIA BREAST MILK
     Dosage: 175 UNITS, SINGLE
     Route: 063
     Dates: start: 20201014, end: 20201014
  2. LEXAPRO [Suspect]
     Active Substance: ESCITALOPRAM OXALATE
     Indication: EXPOSURE VIA BREAST MILK
     Dosage: 10 MG, QD
     Route: 063
  3. TOPIRAMATE. [Concomitant]
     Active Substance: TOPIRAMATE
     Dosage: 150 MG, QPM
     Route: 063
  4. MIRENA [Concomitant]
     Active Substance: LEVONORGESTREL
     Dosage: 52 MG, SINGLE
     Route: 063
  5. NARATRIPTAN [Concomitant]
     Active Substance: NARATRIPTAN HYDROCHLORIDE
     Indication: EXPOSURE VIA BREAST MILK
     Dosage: 2.5 MG, PRN
     Route: 063
  6. PNV?TOTAL [Concomitant]
     Dosage: UNK, QD
     Route: 063
  7. ADVIL [Concomitant]
     Active Substance: IBUPROFEN
     Indication: EXPOSURE VIA BREAST MILK
     Route: 063
  8. TOPAMAX [Concomitant]
     Active Substance: TOPIRAMATE
     Dosage: UNK, QD
     Route: 063

REACTIONS (1)
  - Maternal exposure during breast feeding [Unknown]
